FAERS Safety Report 5022188-4 (Version None)
Quarter: 2006Q2

REPORT INFORMATION
  Report Type: 
  Country: None (occurrence: None)
  Receive Date: 20060605
  Receipt Date: 20060522
  Transmission Date: 20061013
  Serious: Yes (Hospitalization)
  Sender: FDA-Public Use
  Company Number: 2006067314

PATIENT
  Age: 76 Year
  Sex: Male

DRUGS (4)
  1. FLUCONAZOLE [Suspect]
     Indication: KLEBSIELLA INFECTION
     Dosage: ORAL
     Route: 048
     Dates: start: 20060328, end: 20060331
  2. FLUCONAZOLE [Suspect]
     Indication: PROSTATE INFECTION
     Dosage: ORAL
     Route: 048
     Dates: start: 20060328, end: 20060331
  3. CIPROFLOXACIN HCL [Suspect]
     Indication: KLEBSIELLA INFECTION
     Dosage: ORAL
     Route: 048
     Dates: start: 20060328, end: 20060331
  4. CIPROFLOXACIN HCL [Suspect]
     Indication: PROSTATE INFECTION
     Dosage: ORAL
     Route: 048
     Dates: start: 20060328, end: 20060331

REACTIONS (6)
  - ANAEMIA [None]
  - HAEMATURIA [None]
  - HAEMOLYTIC URAEMIC SYNDROME [None]
  - RECTAL HAEMORRHAGE [None]
  - RENAL FAILURE ACUTE [None]
  - THROMBOCYTOPENIA [None]
